FAERS Safety Report 7009498-6 (Version None)
Quarter: 2010Q3

REPORT INFORMATION
  Report Type: 
  Country: None (occurrence: None)
  Receive Date: 20100923
  Receipt Date: 20100913
  Transmission Date: 20110219
  Serious: Yes (Hospitalization)
  Sender: FDA-Public Use
  Company Number: PHHY2010US60564

PATIENT
  Age: 43 Year
  Sex: Female

DRUGS (3)
  1. MYFORTIC [Suspect]
     Indication: RENAL TRANSPLANT
     Dosage: 720 MG DAILY
     Route: 048
     Dates: start: 20060613
  2. PROGRAF [Concomitant]
     Dosage: 3 MG, UNK
     Dates: start: 20060613
  3. PROGRAF [Concomitant]
     Dosage: 2.5 MG, UNK

REACTIONS (1)
  - VOLVULUS [None]
